FAERS Safety Report 23888497 (Version 1)
Quarter: 2024Q2

REPORT INFORMATION
  Report Type: Spontaneous
  Country: EG (occurrence: EG)
  Receive Date: 20240523
  Receipt Date: 20240523
  Transmission Date: 20240715
  Serious: Yes (Other)
  Sender: FDA-Public Use
  Company Number: EG-HIKMA PHARMACEUTICALS-EG-H14001-24-04250

PATIENT
  Age: 70 Year
  Sex: Female
  Weight: 75 kg

DRUGS (5)
  1. PACLITAXEL [Suspect]
     Active Substance: PACLITAXEL
     Indication: Endometrial cancer
     Dosage: UNKNOWN, WEEKLY
     Route: 042
     Dates: start: 20240423
  2. LORAZ [HYDROCHLOROTHIAZIDE;LOSARTAN POTASSIUM] [Concomitant]
     Indication: Hypertension
     Dosage: UNKNOWN, QD
     Route: 048
  3. MIXTARD [INSULIN HUMAN;INSULIN HUMAN ISOPHANE] [Concomitant]
     Indication: Diabetes mellitus
     Dosage: 30 MILLIGRAM
     Route: 058
  4. SPECTONE [Concomitant]
     Indication: Hypertension
     Dosage: 25 MILLIGRAM, QD
     Route: 048
  5. VILDAGLIPTIN [Concomitant]
     Active Substance: VILDAGLIPTIN
     Indication: Diabetes mellitus
     Dosage: 50 MILLIGRAM, QD
     Route: 048

REACTIONS (6)
  - Hypersensitivity [Recovered/Resolved]
  - Condition aggravated [Recovered/Resolved]
  - Cyanosis [Recovered/Resolved]
  - Dyspnoea [Recovered/Resolved]
  - Pain [Recovered/Resolved]
  - Flank pain [Recovered/Resolved]

NARRATIVE: CASE EVENT DATE: 20240423
